FAERS Safety Report 18634013 (Version 1)
Quarter: 2020Q4

REPORT INFORMATION
  Report Type: Spontaneous
  Country: US (occurrence: US)
  Receive Date: 20201218
  Receipt Date: 20201218
  Transmission Date: 20210114
  Serious: No
  Sender: FDA-Public Use
  Company Number: None

PATIENT
  Age: 61 Year
  Sex: Female
  Weight: 41.58 kg

DRUGS (5)
  1. FAMOTIDINE 20MG, ROAL [Concomitant]
  2. METAMUCIL 28%, ORAL [Concomitant]
  3. CAPECITABINE. [Suspect]
     Active Substance: CAPECITABINE
     Indication: COLON CANCER
     Route: 048
     Dates: start: 20200408
  4. ACETAMINOPHEN 325MG, ORAL [Concomitant]
  5. ONDANSETRON HCL 8MG, ORAL [Concomitant]

REACTIONS (2)
  - Nasal congestion [None]
  - Epistaxis [None]

NARRATIVE: CASE EVENT DATE: 20201218
